FAERS Safety Report 12742133 (Version 1)
Quarter: 2016Q3

REPORT INFORMATION
  Report Type: Spontaneous
  Country: US (occurrence: US)
  Receive Date: 20160914
  Receipt Date: 20160914
  Transmission Date: 20161109
  Serious: Yes (Other)
  Sender: FDA-Public Use
  Company Number: None

PATIENT
  Age: 12 Year
  Sex: Male
  Weight: 47.25 kg

DRUGS (3)
  1. ARNUITY ELLIPTA [Suspect]
     Active Substance: FLUTICASONE FUROATE
     Indication: LUNG DISORDER
     Dosage: OTHER STRENGTH:MCG;OTHER DOSE:;OTHER FREQUENCY:;OTHER ROUTE:
     Route: 055
     Dates: start: 20160908, end: 20160913
  2. VITAMIN D [Concomitant]
     Active Substance: CHOLECALCIFEROL
  3. PROAIR HFA [Concomitant]
     Active Substance: ALBUTEROL SULFATE

REACTIONS (1)
  - Fatigue [None]

NARRATIVE: CASE EVENT DATE: 20160913
